FAERS Safety Report 23295695 (Version 5)
Quarter: 2025Q1

REPORT INFORMATION
  Report Type: Report from Study
  Country: CA (occurrence: CA)
  Receive Date: 20231214
  Receipt Date: 20250123
  Transmission Date: 20250409
  Serious: Yes (Life-Threatening)
  Sender: ABBVIE
  Company Number: CA-ABBVIE-5535968

PATIENT
  Age: 65 Year
  Sex: Male
  Weight: 72 kg

DRUGS (15)
  1. UPADACITINIB [Suspect]
     Active Substance: UPADACITINIB
     Indication: Dermatitis atopic
     Route: 048
     Dates: start: 20230601
  2. VITAMIN E [Concomitant]
     Active Substance: .ALPHA.-TOCOPHEROL
     Indication: Malaise
     Route: 048
     Dates: start: 2013
  3. PANTOPRAZOLE [Concomitant]
     Active Substance: PANTOPRAZOLE
     Indication: Prophylaxis
     Route: 048
     Dates: start: 2021
  4. VITAMIN A [Concomitant]
     Active Substance: VITAMIN A
     Indication: Malaise
     Route: 048
     Dates: start: 2013
  5. ESCITALOPRAM [Concomitant]
     Active Substance: ESCITALOPRAM OXALATE
     Indication: Anxiety
     Route: 048
     Dates: start: 202301
  6. CALCITRIOL [Concomitant]
     Active Substance: CALCITRIOL
     Indication: Malaise
     Dosage: 4 DAYS PER WEEK
     Route: 048
     Dates: start: 2013, end: 20231207
  7. CALCITRIOL [Concomitant]
     Active Substance: CALCITRIOL
     Indication: Malaise
     Dosage: 3 DAYS PER WEEK (MONDAY, WEDNESDAY AND FRIDAY
     Route: 048
     Dates: start: 2013, end: 20231207
  8. MCAL [Concomitant]
     Indication: Malaise
     Route: 048
     Dates: start: 2013
  9. ALVESCO [Concomitant]
     Active Substance: CICLESONIDE
     Indication: Asthma
     Route: 055
     Dates: start: 2013
  10. ZOPICLONE [Concomitant]
     Active Substance: ZOPICLONE
     Indication: Insomnia
     Route: 048
     Dates: start: 2018
  11. CREON [Concomitant]
     Active Substance: PANCRELIPASE AMYLASE\PANCRELIPASE LIPASE\PANCRELIPASE PROTEASE
     Indication: Malaise
     Route: 048
     Dates: start: 1989
  12. DENOSUMAB [Concomitant]
     Active Substance: DENOSUMAB
     Indication: Osteoporosis
     Dosage: 60 MG / ML
     Route: 058
     Dates: start: 2020
  13. VENTOLIN [Concomitant]
     Active Substance: ALBUTEROL SULFATE
     Indication: Asthma
     Route: 055
     Dates: start: 2013
  14. CYANOCOBALAMIN [Concomitant]
     Active Substance: CYANOCOBALAMIN
     Indication: Anaemia
     Route: 030
     Dates: start: 2013
  15. SALONPAS PAIN RELIEF [Concomitant]
     Active Substance: MENTHOL\METHYL SALICYLATE
     Indication: Back pain
     Route: 061
     Dates: start: 20231120

REACTIONS (2)
  - Hypocalcaemia [Recovered/Resolved]
  - Stress fracture [Recovered/Resolved]

NARRATIVE: CASE EVENT DATE: 20231207
